FAERS Safety Report 25785260 (Version 1)
Quarter: 2025Q3

REPORT INFORMATION
  Report Type: Spontaneous
  Country: US (occurrence: US)
  Receive Date: 20250910
  Receipt Date: 20250910
  Transmission Date: 20251021
  Serious: No
  Sender: CHIESI
  Company Number: US-CHIESI-2025CHF01150

PATIENT
  Age: 9 Year
  Sex: Male
  Weight: 25 kg

DRUGS (7)
  1. FERRIPROX [Suspect]
     Active Substance: DEFERIPRONE
     Indication: Haemochromatosis
     Dosage: 250 MILLIGRAM, QD
     Route: 048
     Dates: start: 20250116
  2. FERRIPROX [Suspect]
     Active Substance: DEFERIPRONE
     Indication: Red blood cell transfusion
  3. FERRIPROX [Suspect]
     Active Substance: DEFERIPRONE
     Indication: Thalassaemia
  4. JADENU [Concomitant]
     Active Substance: DEFERASIROX
     Indication: Product used for unknown indication
  5. FERRIPROX [Concomitant]
     Active Substance: DEFERIPRONE
     Indication: Haemochromatosis
     Dosage: 1000 MILLIGRAM, BID
     Route: 048
     Dates: start: 20240320
  6. FERRIPROX [Concomitant]
     Active Substance: DEFERIPRONE
     Indication: Red blood cell transfusion
  7. FERRIPROX [Concomitant]
     Active Substance: DEFERIPRONE
     Indication: Thalassaemia

REACTIONS (4)
  - Influenza [Recovered/Resolved]
  - Product dose omission issue [Recovered/Resolved]
  - Off label use [Recovered/Resolved]
  - Off label use [Recovered/Resolved]

NARRATIVE: CASE EVENT DATE: 20250116
